FAERS Safety Report 5197588-2 (Version None)
Quarter: 2007Q1

REPORT INFORMATION
  Report Type: 
  Country: None (occurrence: None)
  Receive Date: 20070103
  Receipt Date: 20061228
  Transmission Date: 20070707
  Serious: Yes (Hospitalization)
  Sender: FDA-Public Use
  Company Number: US-ROXANE LABORATORIES, INC-2006-BP-12708RO

PATIENT
  Sex: Female
  Weight: 91 kg

DRUGS (5)
  1. METHADONE HCL [Suspect]
     Indication: PAIN
     Dosage: 10 MG X 1 DOSE
     Route: 048
     Dates: start: 20060912, end: 20060912
  2. HUMULIN N [Concomitant]
     Indication: DIABETES MELLITUS
     Dosage: 25 UNITS IN AM AND PM
     Route: 058
  3. HUMULIN R [Concomitant]
     Indication: DIABETES MELLITUS
     Dosage: SLIDING SCALE AS NEEDED
     Route: 058
  4. CLONOPIN [Concomitant]
  5. ALTACE [Concomitant]

REACTIONS (4)
  - COMA [None]
  - DIALYSIS [None]
  - RENAL FAILURE [None]
  - SEDATION [None]
